FAERS Safety Report 9424601 (Version 1)
Quarter: 2013Q3

REPORT INFORMATION
  Report Type: Spontaneous
  Country: US (occurrence: None)
  Receive Date: 20130726
  Receipt Date: 20130726
  Transmission Date: 20140515
  Serious: Yes (Hospitalization)
  Sender: FDA-Public Use
  Company Number: None

PATIENT
  Age: 33 Year
  Sex: Male
  Weight: 113.4 kg

DRUGS (2)
  1. MARIJUANA [Suspect]
     Indication: BACK PAIN
     Dosage: 2 GRAMS 1-5 BLUNTS/DAY SMOKE
     Dates: start: 20130714, end: 20130719
  2. MARIJUANA [Suspect]

REACTIONS (3)
  - Muscle spasms [None]
  - Back pain [None]
  - Muscle tightness [None]
